FAERS Safety Report 14205874 (Version 6)
Quarter: 2018Q3

REPORT INFORMATION
  Report Type: Report from Study
  Country: JP (occurrence: JP)
  Receive Date: 20171120
  Receipt Date: 20180802
  Transmission Date: 20181010
  Serious: Yes (Hospitalization, Other)
  Sender: FDA-Public Use
  Company Number: JP-BRISTOL-MYERS SQUIBB COMPANY-BMS-2017-104941

PATIENT
  Age: 55 Year
  Sex: Male

DRUGS (1)
  1. NIVOLUMAB [Suspect]
     Active Substance: NIVOLUMAB
     Indication: HODGKIN^S DISEASE
     Dosage: 3 MG/KG, UNK
     Route: 042
     Dates: start: 20170425, end: 20180409

REACTIONS (7)
  - Type 1 diabetes mellitus [Not Recovered/Not Resolved]
  - Inappropriate schedule of drug administration [Unknown]
  - Gastrointestinal haemorrhage [Recovering/Resolving]
  - Haemoptysis [Not Recovered/Not Resolved]
  - Hyperthyroidism [Recovered/Resolved]
  - Anaemia [Not Recovered/Not Resolved]
  - Hypothyroidism [Not Recovered/Not Resolved]

NARRATIVE: CASE EVENT DATE: 20170710
